FAERS Safety Report 10457102 (Version 1)
Quarter: 2014Q3

REPORT INFORMATION
  Report Type: Spontaneous
  Country: US (occurrence: None)
  Receive Date: 20140915
  Receipt Date: 20140915
  Transmission Date: 20150326
  Serious: Yes (Other)
  Sender: FDA-Public Use
  Company Number: None

PATIENT
  Age: 63 Year
  Sex: Male
  Weight: 104.33 kg

DRUGS (1)
  1. BELVIQ [Suspect]
     Active Substance: LORCASERIN HYDROCHLORIDE
     Indication: DECREASED APPETITE
     Dosage: 1 PILL  TWICE DAILY  TAKEN BY MOUTH
     Route: 048
     Dates: start: 20140829, end: 20140830

REACTIONS (6)
  - Mental disorder [None]
  - Palpitations [None]
  - Insomnia [None]
  - Agitation [None]
  - Hypertension [None]
  - Disorientation [None]

NARRATIVE: CASE EVENT DATE: 20140829
